FAERS Safety Report 8187204-X (Version None)
Quarter: 2012Q1

REPORT INFORMATION
  Report Type: 
  Country: None (occurrence: None)
  Receive Date: 20120216
  Receipt Date: 20111104
  Transmission Date: 20120608
  Serious: Yes (Hospitalization)
  Sender: FDA-Public Use
  Company Number: 20111017CINRY2376

PATIENT
  Age: 48 Year
  Sex: Female

DRUGS (13)
  1. HYDROCODONE BITARTRATE + ACETAMINOPHEN [Concomitant]
  2. VITAMIN C (ASCORBIC ACID) (UNKNOWN) [Concomitant]
  3. ZOLOFT [Concomitant]
  4. TRAMADOL ER (TRAMADOL) [Concomitant]
  5. KALBITOR (INJECTION) [Concomitant]
  6. CINRYZE [Suspect]
     Indication: PROPHYLAXIS
     Dosage: (1000 IU, 2-3 TIMES A WEEK), INTRAVENOUS (1500 IU, 2 IN 1 WK), INTRAVENOUS
     Route: 042
     Dates: end: 20110801
  7. CINRYZE [Suspect]
     Indication: HEREDITARY ANGIOEDEMA
     Dosage: (1000 IU, 2-3 TIMES A WEEK), INTRAVENOUS (1500 IU, 2 IN 1 WK), INTRAVENOUS
     Route: 042
     Dates: end: 20110801
  8. ZINC (ZINC) (UNKNOWN) [Concomitant]
  9. CLARITIN [Concomitant]
  10. TYLENOL (PARACETAMOL) (325 MG, TABLETS) [Concomitant]
  11. FIRAZYR (INJECTION) [Concomitant]
  12. PROMETHAZINE [Concomitant]
  13. BUSPIRONE HCL [Concomitant]

REACTIONS (16)
  - SYNCOPE [None]
  - THERAPY REGIMEN CHANGED [None]
  - URINARY TRACT INFECTION [None]
  - HEREDITARY ANGIOEDEMA [None]
  - NAUSEA [None]
  - ASTHMA [None]
  - LETHARGY [None]
  - BRONCHITIS [None]
  - ANGIOEDEMA [None]
  - ABDOMINAL PAIN [None]
  - DIZZINESS [None]
  - CYSTITIS [None]
  - GASTROOESOPHAGEAL REFLUX DISEASE [None]
  - RESPIRATORY TRACT INFECTION [None]
  - EAR INFECTION [None]
  - OTITIS MEDIA [None]
